FAERS Safety Report 19855623 (Version 1)
Quarter: 2021Q3

REPORT INFORMATION
  Report Type: Report from Study
  Country: ZA (occurrence: ZA)
  Receive Date: 20210920
  Receipt Date: 20210920
  Transmission Date: 20211014
  Serious: Yes (Hospitalization)
  Sender: FDA-Public Use
  Company Number: NVSC2021ZA210014

PATIENT
  Sex: Female

DRUGS (3)
  1. KRYXANA [Suspect]
     Active Substance: RIBOCICLIB
     Indication: METASTASES TO BREAST
  2. KRYXANA [Suspect]
     Active Substance: RIBOCICLIB
     Indication: BREAST CANCER
     Dosage: 400 MG, QD
     Route: 048
     Dates: start: 202101
  3. KRYXANA [Suspect]
     Active Substance: RIBOCICLIB
     Indication: METASTASES TO BONE

REACTIONS (2)
  - Pain [Unknown]
  - Decreased immune responsiveness [Unknown]
